FAERS Safety Report 6098282-6 (Version None)
Quarter: 2009Q1

REPORT INFORMATION
  Report Type: 
  Country: None (occurrence: None)
  Receive Date: 20090227
  Receipt Date: 20090204
  Transmission Date: 20090719
  Serious: Yes (Hospitalization)
  Sender: FDA-Public Use
  Company Number: US-GENENTECH-278103

PATIENT
  Sex: Female

DRUGS (12)
  1. BEVACIZUMAB [Suspect]
     Indication: BREAST CANCER
     Dosage: 945 MG/KG, Q2W
     Route: 042
     Dates: start: 20080708
  2. DOXORUBICIN HCL [Suspect]
     Indication: BREAST CANCER
     Dosage: 120 MG/M2, Q2W
     Route: 042
     Dates: start: 20080708
  3. CYCLOPHOSPHAMIDE [Suspect]
     Indication: BREAST CANCER
     Dosage: 1200 MG/M2, Q2W
     Route: 042
     Dates: start: 20080708, end: 20080804
  4. LORAZEPAM [Concomitant]
     Indication: DRUG USE FOR UNKNOWN INDICATION
     Dosage: UNK
     Dates: start: 20080622, end: 20080625
  5. ZOFRAN [Concomitant]
     Indication: DRUG USE FOR UNKNOWN INDICATION
     Dosage: UNK
     Dates: start: 20080722, end: 20080811
  6. MOTRIN [Concomitant]
     Indication: DRUG USE FOR UNKNOWN INDICATION
     Dosage: UNK
     Dates: start: 20050101
  7. TYLENOL (CAPLET) [Concomitant]
     Indication: DRUG USE FOR UNKNOWN INDICATION
     Dosage: UNK
     Dates: start: 20080709, end: 20080711
  8. EMEND [Concomitant]
     Indication: DRUG USE FOR UNKNOWN INDICATION
     Dosage: UNK
     Dates: start: 20080708, end: 20080819
  9. CLOXACILINA [Concomitant]
     Indication: DRUG USE FOR UNKNOWN INDICATION
     Dosage: UNK
     Dates: start: 20080709
  10. DECADRON [Concomitant]
     Indication: DRUG USE FOR UNKNOWN INDICATION
     Dosage: UNK
     Dates: start: 20080709, end: 20080930
  11. PEPCID [Concomitant]
     Indication: DRUG USE FOR UNKNOWN INDICATION
     Dosage: UNK
     Dates: start: 20080709
  12. VICODIN ES [Concomitant]
     Indication: DRUG USE FOR UNKNOWN INDICATION
     Dosage: UNK
     Dates: start: 20080711

REACTIONS (1)
  - ASTHMA [None]
